FAERS Safety Report 11807570 (Version 1)
Quarter: 2015Q4

REPORT INFORMATION
  Report Type: Other
  Country: DE (occurrence: DE)
  Receive Date: 20151207
  Receipt Date: 20151207
  Transmission Date: 20160305
  Serious: Yes (Hospitalization)
  Sender: FDA-Public Use
  Company Number: DE-MYLANLABS-2015M1042425

PATIENT

DRUGS (17)
  1. DOXEPIN [Concomitant]
     Active Substance: DOXEPIN
     Dosage: 75 MG, QD
     Route: 048
     Dates: end: 20150111
  2. BISOPROLOL [Concomitant]
     Active Substance: BISOPROLOL
     Dosage: 5 MG, QD
     Route: 048
  3. CYMBALTA [Concomitant]
     Active Substance: DULOXETINE HYDROCHLORIDE
     Dosage: 60 MG, QD
     Route: 048
     Dates: start: 20141128, end: 20141130
  4. HYDROCHLOROTHIAZIDE. [Interacting]
     Active Substance: HYDROCHLOROTHIAZIDE
     Dosage: LONG TERM
     Route: 048
  5. SPIRONOLACTON [Interacting]
     Active Substance: SPIRONOLACTONE
     Dosage: 25 MG, QD
     Route: 048
     Dates: start: 20141128, end: 20141205
  6. QUILONORM                          /00033702/ [Suspect]
     Active Substance: LITHIUM CARBONATE
     Dosage: 675 MG, QD
     Route: 048
     Dates: start: 20141221, end: 20150105
  7. CYMBALTA [Concomitant]
     Active Substance: DULOXETINE HYDROCHLORIDE
     Dosage: 60 MG, QD
     Route: 048
     Dates: start: 20141206, end: 20141221
  8. MOXONIDIN [Concomitant]
     Active Substance: MOXONIDINE
     Dosage: 0.4 MG, QD
     Route: 048
     Dates: start: 20141028, end: 20141208
  9. QUILONORM                          /00033702/ [Suspect]
     Active Substance: LITHIUM CARBONATE
     Dosage: 1125 MG, QD
     Route: 048
     Dates: end: 20141203
  10. QUILONORM                          /00033702/ [Suspect]
     Active Substance: LITHIUM CARBONATE
     Dosage: 450-0 MG
     Route: 048
     Dates: start: 20150106, end: 20150118
  11. CYMBALTA [Concomitant]
     Active Substance: DULOXETINE HYDROCHLORIDE
     Dosage: 30 MG, QD
     Route: 048
     Dates: start: 20141028, end: 20141127
  12. QUILONORM                          /00033702/ [Suspect]
     Active Substance: LITHIUM CARBONATE
     Dosage: 675 MG, QD
     Route: 048
     Dates: start: 20141204, end: 20141205
  13. CYMBALTA [Concomitant]
     Active Substance: DULOXETINE HYDROCHLORIDE
     Dosage: 90 MG, QD
     Route: 048
     Dates: start: 20141222
  14. DOXEPIN [Concomitant]
     Active Substance: DOXEPIN
     Dosage: 50 MG, QD
     Route: 048
     Dates: start: 20150112
  15. CARMEN                             /01366402/ [Concomitant]
     Active Substance: LERCANIDIPINE
     Dosage: 20 MG, QD
     Route: 048
     Dates: start: 201410
  16. QUILONORM                          /00033702/ [Suspect]
     Active Substance: LITHIUM CARBONATE
     Dosage: 450 MG, QD
     Route: 048
     Dates: start: 20141209, end: 20141220
  17. CYMBALTA [Concomitant]
     Active Substance: DULOXETINE HYDROCHLORIDE
     Dosage: 120 MG, QD
     Route: 048
     Dates: start: 20141201, end: 20141205

REACTIONS (1)
  - Toxicity to various agents [Recovered/Resolved]

NARRATIVE: CASE EVENT DATE: 20141201
